FAERS Safety Report 17318475 (Version 2)
Quarter: 2020Q1

REPORT INFORMATION
  Report Type: Spontaneous
  Country: US (occurrence: US)
  Receive Date: 20200124
  Receipt Date: 20200207
  Transmission Date: 20200409
  Serious: Yes (Hospitalization, Other)
  Sender: FDA-Public Use
  Company Number: US-VYERA PHARMACEUTICALS, LLC-2020VYE00003

PATIENT
  Age: 50 Year
  Sex: Male
  Weight: 73.92 kg

DRUGS (8)
  1. LEUCOVORIN. [Concomitant]
     Active Substance: LEUCOVORIN
     Dosage: 25 MG, 1X/DAY
     Route: 048
     Dates: start: 20191127, end: 202001
  2. LEUCOVORIN. [Concomitant]
     Active Substance: LEUCOVORIN
     Dosage: 50 MG, 1X/DAY
     Route: 048
     Dates: start: 202001
  3. LEVETIRACETAM. [Concomitant]
     Active Substance: LEVETIRACETAM
     Dosage: 500 MG, 2X/DAY
     Dates: start: 20191127
  4. DECADRON [Concomitant]
     Active Substance: DEXAMETHASONE
     Dosage: UNK
     Dates: start: 20191126, end: 20191223
  5. DARAPRIM [Suspect]
     Active Substance: PYRIMETHAMINE
     Indication: TOXOPLASMOSIS
     Dosage: 75 MG, 1X/DAY
     Route: 048
     Dates: start: 20191127
  6. INFLUENZA VACCINE [Concomitant]
     Active Substance: INFLUENZA VIRUS VACCINE
     Dosage: UNK
     Dates: start: 20191206, end: 20191206
  7. SENNA [Concomitant]
     Active Substance: SENNA LEAF\SENNOSIDES\SENNOSIDES A AND B
     Dosage: 2 TABLETS, 1X/DAY ^NIGHTLY^
     Route: 048
  8. SULFADIAZINE. [Suspect]
     Active Substance: SULFADIAZINE
     Indication: TOXOPLASMOSIS
     Dosage: 1500 MG, 4X/DAY (EVERY 6 HOURS)
     Route: 048
     Dates: start: 20191127

REACTIONS (27)
  - Viral infection [Recovered/Resolved]
  - Dysphonia [Not Recovered/Not Resolved]
  - Insomnia [Unknown]
  - Anaemia [Not Recovered/Not Resolved]
  - Pyrexia [Recovered/Resolved]
  - Tachycardia [Recovering/Resolving]
  - Thrombocytosis [Not Recovered/Not Resolved]
  - Neck pain [Recovered/Resolved]
  - Product dose omission [Recovered/Resolved]
  - Toxoplasmosis [Not Recovered/Not Resolved]
  - Atelectasis [Unknown]
  - Thrombocytopenia [Recovered/Resolved]
  - Tachypnoea [Recovering/Resolving]
  - Sinusitis bacterial [Recovering/Resolving]
  - Oesophagitis [Recovering/Resolving]
  - Leukopenia [Not Recovered/Not Resolved]
  - Infection [Unknown]
  - Spleen scan abnormal [Unknown]
  - Central nervous system lesion [Not Recovered/Not Resolved]
  - Neutropenia [Not Recovered/Not Resolved]
  - Inspiratory capacity decreased [Recovered/Resolved]
  - Headache [Recovered/Resolved]
  - Oesophageal candidiasis [Recovering/Resolving]
  - Candida infection [Recovering/Resolving]
  - Dizziness [Unknown]
  - Pulmonary fibrosis [Unknown]
  - Vomiting [Unknown]

NARRATIVE: CASE EVENT DATE: 201912
